FAERS Safety Report 5597963-8 (Version None)
Quarter: 2008Q1

REPORT INFORMATION
  Report Type: 
  Country: None (occurrence: None)
  Receive Date: 20080116
  Receipt Date: 20080107
  Transmission Date: 20080703
  Serious: Yes (Other)
  Sender: FDA-Public Use
  Company Number: 2007SP025314

PATIENT
  Age: 60 Year
  Sex: Male

DRUGS (29)
  1. TEMODAL [Suspect]
     Indication: GLIOBLASTOMA
     Dates: start: 20071101
  2. DEXAMETHASONE TAB [Suspect]
     Indication: DRUG THERAPY
     Dates: end: 20071201
  3. CIPRAMIL [Concomitant]
  4. SPIRESIS [Concomitant]
  5. PANTOPRAZOLE SODIUM [Concomitant]
  6. FURESIS [Concomitant]
  7. CARDACE [Concomitant]
  8. MOVICOL [Concomitant]
  9. KALISOL [Concomitant]
  10. VISCOTEARS [Concomitant]
  11. BETOLVEX [B-12 VITAMIN INJECTIONS] [Concomitant]
  12. OXANEST [Concomitant]
  13. PARA-TABS [Concomitant]
  14. VOLTAREN [Concomitant]
  15. CLONIDINE HCL [Concomitant]
  16. COTRIM DS [Concomitant]
  17. HUMALOG [Concomitant]
  18. PROTAPHANE (ISOPHANE INSULIN) [Concomitant]
  19. NOVORAPID [Concomitant]
  20. NOVOLOG MIX 70/30 [Concomitant]
  21. CRAMPITON [Concomitant]
  22. PROCHLORPERAZINE [Concomitant]
  23. OMEPRAZOLE [Concomitant]
  24. AMLODIPINE [Concomitant]
  25. NEXIUM [Concomitant]
  26. DULPHALAC [Concomitant]
  27. DETRUSITOL [Concomitant]
  28. EXOCIN [Concomitant]
  29. PANACOD [Concomitant]

REACTIONS (3)
  - DIABETES MELLITUS [None]
  - JC VIRUS INFECTION [None]
  - LOSS OF CONSCIOUSNESS [None]
